FAERS Safety Report 8600785-4 (Version None)
Quarter: 2012Q3

REPORT INFORMATION
  Report Type: 
  Country: None (occurrence: None)
  Receive Date: 20120806
  Receipt Date: 20120720
  Transmission Date: 20120928
  Serious: Yes (Hospitalization)
  Sender: FDA-Public Use
  Company Number: 2012000175

PATIENT
  Age: 80 Year
  Sex: Female

DRUGS (6)
  1. PRAREDUCT (PRAVASTATIN SODIUM) [Concomitant]
  2. NOBITEN (NEBIVOLOL) [Concomitant]
  3. COVERSYL PLUS (INDAPAMIDE, PERINDOPRIL ERBUMINE) [Suspect]
     Indication: HYPERTENSION
     Dosage: 1 DF, QD, ORAL
     Route: 048
     Dates: end: 20120531
  4. ACEON [Suspect]
     Indication: HYPERTENSION
     Dosage: 5;2.5 MG, QD, ORAL
     Route: 048
     Dates: start: 20120501, end: 20120531
  5. ACEON [Suspect]
     Indication: HYPERTENSION
     Dosage: 5;2.5 MG, QD, ORAL
     Route: 048
     Dates: start: 20120101
  6. ACEON [Suspect]
     Indication: HYPERTENSION
     Dosage: 5;2.5 MG, QD, ORAL
     Route: 048
     Dates: start: 20120101, end: 20120101

REACTIONS (32)
  - HYPERCHOLESTEROLAEMIA [None]
  - CONSTIPATION [None]
  - BLOOD CREATININE [None]
  - FATIGUE [None]
  - DEHYDRATION [None]
  - URINE ANALYSIS [None]
  - HYPERTENSION [None]
  - BLOOD PRESSURE INCREASED [None]
  - RED BLOOD CELL COUNT [None]
  - RENAL ARTERY STENOSIS [None]
  - OEDEMA [None]
  - BLOOD UREA INCREASED [None]
  - BLOOD URIC ACID INCREASED [None]
  - BLOOD BICARBONATE [None]
  - ELECTROCARDIOGRAM [None]
  - CHEST X-RAY [None]
  - URINARY TRACT INFECTION [None]
  - ANAEMIA [None]
  - BLOOD UREA [None]
  - BLOOD CREATININE INCREASED [None]
  - BLOOD PRESSURE NORMAL [None]
  - CHOLECYSTECTOMY [None]
  - BLOOD MAGNESIUM [None]
  - RENAL FAILURE ACUTE [None]
  - PARITY [None]
  - GOUT [None]
  - DRUG HYPERSENSITIVITY [None]
  - GLOMERULAR FILTRATION RATE [None]
  - HOSPITALISATION [None]
  - LABORATORY TEST [None]
  - RENAL FAILURE [None]
  - BLOOD URIC ACID [None]
